FAERS Safety Report 18296453 (Version 1)
Quarter: 2020Q3

REPORT INFORMATION
  Report Type: Other
  Country: US (occurrence: US)
  Receive Date: 20200922
  Receipt Date: 20200922
  Transmission Date: 20201103
  Serious: Yes (Other)
  Sender: FDA-Public Use
  Company Number: US-ROCHE-2682712

PATIENT
  Age: 2 Year
  Sex: Male

DRUGS (4)
  1. TOCILIZUMAB. [Suspect]
     Active Substance: TOCILIZUMAB
     Indication: STILL^S DISEASE
     Route: 042
  2. TOCILIZUMAB. [Suspect]
     Active Substance: TOCILIZUMAB
     Indication: HAEMOPHAGOCYTIC LYMPHOHISTIOCYTOSIS
  3. TOFACITINIB [Concomitant]
     Active Substance: TOFACITINIB
     Indication: HAEMOPHAGOCYTIC LYMPHOHISTIOCYTOSIS
  4. TOFACITINIB [Concomitant]
     Active Substance: TOFACITINIB
     Indication: STILL^S DISEASE

REACTIONS (1)
  - Hepatotoxicity [Recovered/Resolved]
